FAERS Safety Report 9920381 (Version 1)
Quarter: 2014Q1

REPORT INFORMATION
  Report Type: Spontaneous
  Country: IT (occurrence: IT)
  Receive Date: 20140224
  Receipt Date: 20140224
  Transmission Date: 20141002
  Serious: Yes (Hospitalization)
  Sender: FDA-Public Use
  Company Number: PHHY2014IT019833

PATIENT
  Sex: Female

DRUGS (6)
  1. METFORMIN [Suspect]
     Dosage: 1000 MG, QD
     Route: 048
     Dates: start: 20130101, end: 20131110
  2. FUROSEMIDE [Suspect]
  3. COUMADINE [Concomitant]
     Dosage: 5 MG, UNK
  4. RAMIPRIL [Concomitant]
     Dosage: 5 MG, UNK
     Route: 048
  5. BISOPROLOL [Concomitant]
     Dosage: 2.5 MG, UNK
     Route: 048
  6. ESOMEPRAZOLE [Concomitant]

REACTIONS (1)
  - Metabolic acidosis [Not Recovered/Not Resolved]
